FAERS Safety Report 5743501-6 (Version None)
Quarter: 2008Q2

REPORT INFORMATION
  Report Type: 
  Country: None (occurrence: None)
  Receive Date: 20080519
  Receipt Date: 20080519
  Transmission Date: 20081010
  Serious: Yes (Other)
  Sender: FDA-Public Use
  Company Number: None

PATIENT
  Age: 58 Year
  Sex: Female
  Weight: 65.7716 kg

DRUGS (1)
  1. PROAIR HFA [Suspect]
     Indication: RESPIRATORY DISORDER
     Dosage: 2 PUFFS EVERY 4 HRS AS NEEDED INHAL
     Route: 055

REACTIONS (1)
  - DRUG EFFECT DECREASED [None]
